FAERS Safety Report 24044801 (Version 1)
Quarter: 2024Q3

REPORT INFORMATION
  Report Type: Report from Study
  Country: IT (occurrence: IT)
  Receive Date: 20240703
  Receipt Date: 20240703
  Transmission Date: 20241017
  Serious: Yes (Death, Other)
  Sender: RANBAXY
  Company Number: IT-SUN PHARMACEUTICAL INDUSTRIES LTD-2024RR-454514

PATIENT
  Age: 20 Year
  Sex: Male

DRUGS (3)
  1. ALPRAZOLAM [Suspect]
     Active Substance: ALPRAZOLAM
     Indication: Product used for unknown indication
     Dosage: 68 NANOGRAM
     Route: 065
  2. METHOXYACETYLFENTANYL [Suspect]
     Active Substance: METHOXYACETYLFENTANYL
     Indication: Product used for unknown indication
     Dosage: 266 NANOGRAM
     Route: 065
  3. FURANYLFENTANYL [Suspect]
     Active Substance: FURANYLFENTANYL
     Indication: Product used for unknown indication
     Dosage: 4.3 NANOGRAM
     Route: 065

REACTIONS (2)
  - Toxicity to various agents [Fatal]
  - Suicide attempt [Fatal]
